FAERS Safety Report 6340574-7 (Version None)
Quarter: 2009Q3

REPORT INFORMATION
  Report Type: 
  Country: None (occurrence: None)
  Receive Date: 20090902
  Receipt Date: 20090819
  Transmission Date: 20100115
  Serious: Yes (Life-Threatening, Hospitalization)
  Sender: FDA-Public Use
  Company Number: GXKR2009PL09469

PATIENT
  Age: 15 Day
  Sex: Male
  Weight: 2.2 kg

DRUGS (9)
  1. VANCOMYCIN [Suspect]
     Indication: CATHETER RELATED INFECTION
     Dosage: INTRAVENOUS
     Route: 042
  2. AMOXICILLIN AND CLAVULANATE POTASSIUM [Suspect]
     Indication: INTRAUTERINE INFECTION
  3. FUROSEMIDE [Suspect]
     Indication: DYSURIA
  4. TREXALL [Suspect]
     Dosage: TRANSPLACENTAL
     Route: 064
  5. RHEUMATREX [Suspect]
     Dosage: TRANSPLACENTAL
     Route: 064
  6. NETILMICIN SULFATE [Suspect]
     Indication: INTRAUTERINE INFECTION
  7. DICLOFENAC SODIUM [Concomitant]
  8. STEROIDS NOS        (NO INGREDIENTS/SUBSTANCES) [Concomitant]
  9. FLUCONAZOLE [Concomitant]

REACTIONS (9)
  - APGAR SCORE LOW [None]
  - CATHETER RELATED INFECTION [None]
  - GENERAL PHYSICAL HEALTH DETERIORATION [None]
  - HAEMATURIA [None]
  - MATERNAL DRUGS AFFECTING FOETUS [None]
  - NEONATAL RESPIRATORY FAILURE [None]
  - PREMATURE BABY [None]
  - PROTEINURIA [None]
  - RENAL FAILURE ACUTE [None]
